FAERS Safety Report 24963422 (Version 2)
Quarter: 2025Q1

REPORT INFORMATION
  Report Type: Spontaneous
  Country: CL (occurrence: CL)
  Receive Date: 20250213
  Receipt Date: 20250219
  Transmission Date: 20250409
  Serious: Yes (Hospitalization)
  Sender: ROCHE
  Company Number: CL-ROCHE-10000196061

PATIENT
  Age: 13 Year
  Sex: Male

DRUGS (2)
  1. HEMLIBRA [Suspect]
     Active Substance: EMICIZUMAB-KXWH
     Indication: Haemophilia A with anti factor VIII
     Route: 065
  2. HUMAN PAPILLOMAVIRUS VACCINE [Concomitant]
     Active Substance: HUMAN PAPILLOMAVIRUS VACCINE
     Indication: Product used for unknown indication

REACTIONS (6)
  - Pain [Unknown]
  - Haemorrhage [Unknown]
  - Blood urine present [Unknown]
  - Puncture site swelling [Unknown]
  - Incorrect dose administered [Unknown]
  - Seizure [Unknown]

NARRATIVE: CASE EVENT DATE: 20250101
